FAERS Safety Report 4475817-8 (Version None)
Quarter: 2004Q4

REPORT INFORMATION
  Report Type: 
  Country: None (occurrence: None)
  Receive Date: 20041015
  Receipt Date: 20041005
  Transmission Date: 20050328
  Serious: Yes (Other)
  Sender: FDA-Public Use
  Company Number: PHEH2004US10742

PATIENT
  Age: 64 Year
  Sex: Male

DRUGS (1)
  1. ZOMETA [Suspect]
     Indication: MULTIPLE MYELOMA

REACTIONS (4)
  - OSTEONECROSIS [None]
  - PERIODONTAL INFECTION [None]
  - TOOTH EXTRACTION [None]
  - WOUND DEBRIDEMENT [None]
